FAERS Safety Report 24153377 (Version 1)
Quarter: 2024Q3

REPORT INFORMATION
  Report Type: Report from Study
  Country: US (occurrence: None)
  Receive Date: 20240730
  Receipt Date: 20240730
  Transmission Date: 20241017
  Serious: Yes (Life-Threatening, Other)
  Sender: ASTRAZENECA
  Company Number: 2024A170521

PATIENT
  Sex: Male
  Weight: 74.8 kg

DRUGS (1)
  1. LYNPARZA [Suspect]
     Active Substance: OLAPARIB
     Indication: Prostate cancer
     Route: 048
     Dates: start: 20240617

REACTIONS (5)
  - Hypotension [Not Recovered/Not Resolved]
  - Vomiting [Not Recovered/Not Resolved]
  - Dehydration [Not Recovered/Not Resolved]
  - Dizziness postural [Not Recovered/Not Resolved]
  - Fall [Not Recovered/Not Resolved]
